FAERS Safety Report 6793841-7 (Version None)
Quarter: 2010Q2

REPORT INFORMATION
  Report Type: 
  Country: None (occurrence: None)
  Receive Date: 20100624
  Receipt Date: 20090310
  Transmission Date: 20101027
  Serious: Yes (Death, Other)
  Sender: FDA-Public Use
  Company Number: US-PFIZER INC-2009181188

PATIENT
  Sex: Female
  Weight: 93 kg

DRUGS (2)
  1. MEDROXYPROGESTERONE ACETATE [Suspect]
     Indication: HORMONE THERAPY
     Dosage: 10 MG, UNK
     Dates: start: 20030101, end: 20040101
  2. PREMPRO [Suspect]
     Indication: HORMONE THERAPY
     Dosage: UNK
     Dates: start: 20010101, end: 20030101

REACTIONS (2)
  - ENDOMETRIAL CANCER [None]
  - OVARIAN CANCER [None]
